FAERS Safety Report 7730763-9 (Version None)
Quarter: 2011Q3

REPORT INFORMATION
  Report Type: 
  Country: None (occurrence: None)
  Receive Date: 20110906
  Receipt Date: 20110824
  Transmission Date: 20111222
  Serious: Yes (Hospitalization, Other)
  Sender: FDA-Public Use
  Company Number: ES-GLAXOSMITHKLINE-B0744310A

PATIENT
  Sex: Female
  Weight: 81 kg

DRUGS (1)
  1. VOTRIENT [Suspect]
     Indication: OVARIAN NEOPLASM
     Dosage: 800MG PER DAY
     Route: 048
     Dates: start: 20110413, end: 20110823

REACTIONS (2)
  - COLONIC FISTULA [None]
  - FEMALE GENITAL TRACT FISTULA [None]
